FAERS Safety Report 11055494 (Version 8)
Quarter: 2015Q4

REPORT INFORMATION
  Report Type: Spontaneous
  Country: US (occurrence: US)
  Receive Date: 20150422
  Receipt Date: 20151103
  Transmission Date: 20160304
  Serious: No
  Sender: FDA-Public Use
  Company Number: US-PFIZER INC-2015098022

PATIENT
  Age: 56 Year
  Sex: Female
  Weight: 104 kg

DRUGS (8)
  1. PRILOSEC [Concomitant]
     Active Substance: OMEPRAZOLE MAGNESIUM
     Dosage: UNK
  2. CLARITIN [Concomitant]
     Active Substance: LORATADINE
     Dosage: UNK
  3. SUTENT [Suspect]
     Active Substance: SUNITINIB MALATE
     Dosage: 37.5 MG, CYCLIC (2 WEEKS ON AND 1 WEEK OFF)
     Dates: start: 20150420, end: 20151005
  4. MOUTH WASH [Concomitant]
     Dosage: AS NEEDED
  5. VERAPAMIL [Concomitant]
     Active Substance: VERAPAMIL HYDROCHLORIDE
  6. OXYBUTYNIN [Concomitant]
     Active Substance: OXYBUTYNIN
     Dosage: UNK
  7. COZAAR [Concomitant]
     Active Substance: LOSARTAN POTASSIUM
     Dosage: UNK
  8. SUTENT [Suspect]
     Active Substance: SUNITINIB MALATE
     Indication: METASTATIC RENAL CELL CARCINOMA
     Dosage: 50 MG, DAILY, FOR 2 WEEKS ON / 1 WEEK OFF ON 16MAR2015 (REPEAT EVERY 21 DAYS)
     Route: 048
     Dates: start: 20150316, end: 20150413

REACTIONS (17)
  - Diarrhoea [Recovered/Resolved]
  - White blood cell count decreased [Recovering/Resolving]
  - Malaise [Recovered/Resolved]
  - Fatigue [Unknown]
  - Palmar-plantar erythrodysaesthesia syndrome [Not Recovered/Not Resolved]
  - Dizziness [Unknown]
  - Urinary tract infection [Unknown]
  - Platelet count decreased [Recovering/Resolving]
  - Blood pressure increased [Not Recovered/Not Resolved]
  - Vision blurred [Unknown]
  - Thrombocytopenia [Not Recovered/Not Resolved]
  - Metastatic renal cell carcinoma [Unknown]
  - Hyperkeratosis [Unknown]
  - Pain in extremity [Unknown]
  - Rash [Recovered/Resolved]
  - Disease progression [Unknown]
  - Oral pain [Not Recovered/Not Resolved]

NARRATIVE: CASE EVENT DATE: 2015
